FAERS Safety Report 8907314 (Version 1)
Quarter: 2012Q4

REPORT INFORMATION
  Report Type: 
  Country: AR (occurrence: AR)
  Receive Date: 20121114
  Receipt Date: 20121114
  Transmission Date: 20130627
  Serious: Yes (Death)
  Sender: FDA-Public Use
  Company Number: PHHY2012AR104692

PATIENT
  Sex: Female

DRUGS (1)
  1. DIOVAN [Suspect]
     Dosage: 320 mg, UNK

REACTIONS (4)
  - Peritonitis [Fatal]
  - Gastrointestinal injury [Fatal]
  - Gastrointestinal haemorrhage [Fatal]
  - Pyrexia [Fatal]
